FAERS Safety Report 22788746 (Version 3)
Quarter: 2023Q4

REPORT INFORMATION
  Report Type: Spontaneous
  Country: CA (occurrence: CA)
  Receive Date: 20230804
  Receipt Date: 20231024
  Transmission Date: 20240110
  Serious: Yes (Other)
  Sender: FDA-Public Use
  Company Number: CA-PFIZER INC-PV202200078541

PATIENT
  Age: 58 Year
  Sex: Male
  Weight: 82.8 kg

DRUGS (10)
  1. INLYTA [Suspect]
     Active Substance: AXITINIB
     Indication: Renal cell carcinoma
     Dosage: 5 MG, 2X/DAY TAKE 1 TABLET
     Route: 048
     Dates: start: 20220826
  2. INLYTA [Suspect]
     Active Substance: AXITINIB
     Dosage: 7 MG, 2X/DAY,TAKE 2 TABLETS (2MG) 1X5MG TABLET ( TOTAL OF 7MG DOSE)
     Route: 048
  3. INLYTA [Suspect]
     Active Substance: AXITINIB
     Dosage: 7 MG, TAKE/DAY 2 TABS (2MG) 2X  WITH ONE INLYTA 1 TAB (5MG TOTAL) BY MOUTH 2X/DAY (FOR 7MG TOTAL)
     Route: 048
  4. INLYTA [Suspect]
     Active Substance: AXITINIB
     Dosage: 7 MG, TAKE 2 TAB(2MG) 2X/DAY WITH 1 INLYTA 1 TAB (5MG TOTAL) BY MOUTH 2X/DAY (FOR 7MG TOTAL)X21DAYS
     Route: 048
  5. INLYTA [Suspect]
     Active Substance: AXITINIB
     Dosage: 8 MG DOSE: 4 MG TWICE A DAY FOR 21 DAYS
     Route: 048
     Dates: start: 20230526
  6. INLYTA [Suspect]
     Active Substance: AXITINIB
     Dosage: 8 MG DOSE: 4 MG TWICE A DAY FOR 21 DAYS
     Route: 048
     Dates: start: 20230707
  7. INLYTA [Suspect]
     Active Substance: AXITINIB
     Dosage: 1 TAB OF 5 MG 2X/DAY W/3 TABS OF 1 MG 2X/DAY (TOTAL DOSE 8 MG)
     Route: 048
  8. INLYTA [Suspect]
     Active Substance: AXITINIB
     Dosage: 7 MG, 2X/DAY,1MG AND 5MG, TAKE 2 TABS OF 1 MG+ 1 TAB OF 5 MG, FOR 7 MG TOTAL 2X/DAY X21 DAYS
     Route: 048
     Dates: start: 20230727
  9. INLYTA [Suspect]
     Active Substance: AXITINIB
     Dosage: 7 MG, 2X/DAY,1MG AND 5MG, TAKE 2 TABS OF 1 MG+ 1 TAB OF 5 MG, FOR 7 MG TOTAL 2X/DAY X21 DAYS
     Route: 048
     Dates: start: 20230907
  10. LEVOTHYROXINE SODIUM [Concomitant]
     Active Substance: LEVOTHYROXINE SODIUM
     Dosage: 50 MG, DAILY
     Route: 048

REACTIONS (6)
  - Arteriosclerosis coronary artery [Unknown]
  - Weight decreased [Not Recovered/Not Resolved]
  - Pulmonary mass [Unknown]
  - Hepatic steatosis [Unknown]
  - Hepatic lesion [Unknown]
  - Arteriosclerosis [Unknown]

NARRATIVE: CASE EVENT DATE: 20220101
